FAERS Safety Report 14884296 (Version 1)
Quarter: 2018Q2

REPORT INFORMATION
  Report Type: Spontaneous
  Country: US (occurrence: US)
  Receive Date: 20180511
  Receipt Date: 20180511
  Transmission Date: 20180711
  Serious: Yes (Hospitalization, Other)
  Sender: FDA-Public Use
  Company Number: US-PRINSTON PHARMACEUTICAL INC.-2018PRN00232

PATIENT
  Age: 90 Year
  Sex: Female
  Weight: 65.76 kg

DRUGS (7)
  1. ESCITALOPRAM [Suspect]
     Active Substance: ESCITALOPRAM OXALATE
     Indication: DEPRESSION
     Dosage: 10 MG, 1X/DAY
     Route: 048
     Dates: start: 2013, end: 20180430
  2. BENICAR [Concomitant]
     Active Substance: OLMESARTAN MEDOXOMIL
  3. HYDROCODONE BITARTRATE AND ACETAMINOPHEN [Suspect]
     Active Substance: ACETAMINOPHEN\HYDROCODONE BITARTRATE
     Dosage: 0.5 TABLETS, UNK
     Dates: start: 201804, end: 201804
  4. CARVEDILOL. [Concomitant]
     Active Substance: CARVEDILOL
  5. HYDROCODONE BITARTRATE AND ACETAMINOPHEN [Suspect]
     Active Substance: ACETAMINOPHEN\HYDROCODONE BITARTRATE
     Indication: PAIN
     Dosage: UNK
     Dates: start: 201804, end: 201804
  6. TRAMADOL. [Suspect]
     Active Substance: TRAMADOL
     Indication: PAIN
     Dosage: UNK
     Dates: start: 20180425, end: 20180430
  7. ESCITALOPRAM [Suspect]
     Active Substance: ESCITALOPRAM OXALATE
     Indication: EMOTIONAL DISORDER

REACTIONS (13)
  - Fall [Unknown]
  - Illusion [Unknown]
  - Lower limb fracture [Unknown]
  - Abnormal behaviour [Unknown]
  - Head injury [Unknown]
  - Somnolence [Recovering/Resolving]
  - Humerus fracture [Unknown]
  - Hallucination [Recovered/Resolved]
  - Feeling abnormal [Not Recovered/Not Resolved]
  - Hip arthroplasty [Unknown]
  - Pain [Unknown]
  - Abnormal dreams [Unknown]
  - Upper limb fracture [Unknown]

NARRATIVE: CASE EVENT DATE: 2013
